FAERS Safety Report 19349809 (Version 1)
Quarter: 2021Q2

REPORT INFORMATION
  Report Type: Spontaneous
  Country: US (occurrence: US)
  Receive Date: 20210531
  Receipt Date: 20210531
  Transmission Date: 20210717
  Serious: Yes (Other)
  Sender: FDA-Public Use
  Company Number: US-TEVA-2021-US-1916708

PATIENT
  Sex: Female

DRUGS (6)
  1. RANITIDINE. [Suspect]
     Active Substance: RANITIDINE
     Dosage: FREQUENCY: DAILY, DOSAGE: 300 MG
     Route: 065
     Dates: start: 200601, end: 201612
  2. RANITIDINE. [Suspect]
     Active Substance: RANITIDINE
     Indication: DYSPEPSIA
     Dosage: FREQUENCY: DAILY, DOSAGE: 150 MG
     Route: 065
     Dates: start: 200601, end: 201612
  3. ZANTAC [Suspect]
     Active Substance: RANITIDINE HYDROCHLORIDE
     Indication: DYSPEPSIA
     Dosage: FREQUENCY: DAILY, DOSAGE: UNKNOWN AT THIS TIME
     Route: 065
     Dates: start: 200101, end: 200512
  4. RANITIDINE. [Suspect]
     Active Substance: RANITIDINE
     Dosage: FREQUENCY: DAILY, DOSAGE: 150 MG
     Route: 065
     Dates: start: 200601, end: 201612
  5. RANITIDINE. [Suspect]
     Active Substance: RANITIDINE
     Dosage: FREQUENCY: DAILY, DOSAGE: 300 MG
     Route: 065
     Dates: start: 200601, end: 201612
  6. ZANTAC [Suspect]
     Active Substance: RANITIDINE HYDROCHLORIDE
     Dosage: FREQUENCY: DAILY, DOSAGE: UNKNOWN AT THIS TIME
     Route: 065
     Dates: start: 200101, end: 200512

REACTIONS (1)
  - Renal cancer [Unknown]
